FAERS Safety Report 7673406-5 (Version None)
Quarter: 2011Q3

REPORT INFORMATION
  Report Type: 
  Country: None (occurrence: None)
  Receive Date: 20110810
  Receipt Date: 20110808
  Transmission Date: 20111222
  Serious: No
  Sender: FDA-Public Use
  Company Number: US-PFIZER INC-2011182067

PATIENT
  Sex: Male
  Weight: 77.098 kg

DRUGS (2)
  1. ADVIL LIQUI-GELS [Suspect]
     Indication: MUSCULOSKELETAL PAIN
  2. ADVIL LIQUI-GELS [Suspect]
     Indication: PAIN IN EXTREMITY
     Dosage: 200 MG, AS NEEDED
     Route: 048

REACTIONS (4)
  - THROAT IRRITATION [None]
  - OROPHARYNGEAL PAIN [None]
  - DRUG ADMINISTRATION ERROR [None]
  - GLOSSODYNIA [None]
